FAERS Safety Report 6841451-5 (Version None)
Quarter: 2010Q3

REPORT INFORMATION
  Report Type: 
  Country: None (occurrence: None)
  Receive Date: 20100714
  Receipt Date: 20070706
  Transmission Date: 20110219
  Serious: Yes (Hospitalization, Other)
  Sender: FDA-Public Use
  Company Number: US-PFIZER INC-2007056943

PATIENT
  Sex: Female
  Weight: 78.181 kg

DRUGS (4)
  1. CHANTIX [Suspect]
     Indication: SMOKING CESSATION THERAPY
     Dates: start: 20070601, end: 20070630
  2. EFFEXOR [Concomitant]
  3. XANAX [Concomitant]
  4. VICODIN [Concomitant]
     Dates: end: 20070630

REACTIONS (1)
  - CONVULSION [None]
